FAERS Safety Report 5408355-6 (Version None)
Quarter: 2007Q3

REPORT INFORMATION
  Report Type: 
  Country: None (occurrence: None)
  Receive Date: 20070803
  Receipt Date: 20070717
  Transmission Date: 20080115
  Serious: Yes (Life-Threatening, Hospitalization)
  Sender: FDA-Public Use
  Company Number: 2007RR-08782

PATIENT
  Age: 57 Year
  Sex: Female

DRUGS (12)
  1. ACYCLOVIR SODIUM [Suspect]
     Dosage: 200 MG
     Dates: start: 20070322, end: 20070329
  2. ACYCLOVIR SODIUM [Suspect]
     Indication: HERPES ZOSTER
     Dosage: 200 MG, INTRAVENOUS
     Route: 042
     Dates: start: 20070612, end: 20070615
  3. BISOPROLOL               (BISOPROLOL) UNKNOWN [Concomitant]
  4. CALCICHEW                (CALCIUM CARBONATE) [Concomitant]
  5. CALCIUM ACETATE        (CALCIUM ACETATE) [Concomitant]
  6. CYCLOSPORINE [Concomitant]
  7. OMEPRAZOLE [Concomitant]
  8. PARACETAMOL             (ACETAMINOPHEN/PARACETAMOL) [Concomitant]
  9. PREDNISOLONE [Concomitant]
  10. VALPROIC ACID [Concomitant]
  11. TITRALAC         (CALCIUM CARBONATE X) [Concomitant]
  12. VANCOMYCIN HYDROCHLORIDE            (VANCOMYCIN) UNKNOWN [Concomitant]

REACTIONS (3)
  - HAEMODIALYSIS [None]
  - RENAL FAILURE CHRONIC [None]
  - TRANSPLANT REJECTION [None]
